FAERS Safety Report 5564742-7 (Version None)
Quarter: 2007Q4

REPORT INFORMATION
  Report Type: 
  Country: None (occurrence: None)
  Receive Date: 20071213
  Receipt Date: 20071213
  Transmission Date: 20080405
  Serious: Yes (Other)
  Sender: FDA-Public Use
  Company Number: None

PATIENT
  Age: 7 Year
  Sex: Female
  Weight: 21.7727 kg

DRUGS (1)
  1. CEFDINIR [Suspect]
     Indication: UPPER RESPIRATORY TRACT INFECTION
     Dosage: 1 TEASPOON  1 TIME DAILY  PO  (DURATION: 3 DOSES)
     Route: 048
     Dates: start: 20071019, end: 20071021

REACTIONS (4)
  - ADVERSE REACTION [None]
  - BODY TEMPERATURE INCREASED [None]
  - GINGIVAL BLEEDING [None]
  - MALAISE [None]
